FAERS Safety Report 8102540-0 (Version None)
Quarter: 2012Q1

REPORT INFORMATION
  Report Type: 
  Country: None (occurrence: None)
  Receive Date: 20120201
  Receipt Date: 20111011
  Transmission Date: 20120608
  Serious: No
  Sender: FDA-Public Use
  Company Number: DE-ELI_LILLY_AND_COMPANY-DE201201008649

PATIENT
  Sex: Male

DRUGS (2)
  1. CIALIS [Suspect]
     Indication: PEYRONIE'S DISEASE
     Dosage: 10 MG, UNK
     Route: 048
     Dates: start: 20060101
  2. CIALIS [Suspect]
     Dosage: 5 MG, QD
     Route: 048

REACTIONS (2)
  - INTRAOCULAR PRESSURE INCREASED [None]
  - OFF LABEL USE [None]
